FAERS Safety Report 8136269 (Version 6)
Quarter: 2014Q2

REPORT INFORMATION
  Report Type: Spontaneous
  Country: US (occurrence: US)
  Receive Date: 20110914
  Receipt Date: 20140415
  Transmission Date: 20141212
  Serious: Yes (Hospitalization, Other)
  Sender: FDA-Public Use
  Company Number: US-ASTRAZENECA-2010SE23152

PATIENT
  Age: 63 Year
  Sex: Male
  Weight: 88.5 kg

DRUGS (13)
  1. NEXIUM [Suspect]
     Indication: HYPERCHLORHYDRIA
     Route: 048
     Dates: start: 2001
  2. NEXIUM [Suspect]
     Indication: GASTROOESOPHAGEAL REFLUX DISEASE
     Route: 048
     Dates: start: 2001
  3. NEXIUM [Suspect]
     Indication: HYPERCHLORHYDRIA
     Route: 048
     Dates: start: 2011
  4. NEXIUM [Suspect]
     Indication: GASTROOESOPHAGEAL REFLUX DISEASE
     Route: 048
     Dates: start: 2011
  5. CRESTOR [Suspect]
     Indication: BLOOD CHOLESTEROL INCREASED
     Route: 048
     Dates: start: 2013
  6. PREVACID [Concomitant]
  7. ACIPHEX [Concomitant]
  8. LIPITOR [Concomitant]
  9. PEPCID AC [Concomitant]
  10. ROLAIDS [Concomitant]
  11. PERCOCET [Concomitant]
     Indication: PAIN
     Route: 048
     Dates: start: 201003
  12. VALIUM [Concomitant]
     Indication: PAIN
     Route: 048
     Dates: start: 201003
  13. MORPHINE SULPHATE [Concomitant]
     Indication: PAIN
     Route: 048
     Dates: start: 201003

REACTIONS (19)
  - Accident at work [Unknown]
  - Neoplasm malignant [Unknown]
  - Bladder cancer [Unknown]
  - Prostate cancer [Unknown]
  - Neoplasm [Unknown]
  - Ankle fracture [Unknown]
  - Gastrooesophageal reflux disease [Unknown]
  - Gastrooesophageal reflux disease [Unknown]
  - Back injury [Unknown]
  - Limb injury [Unknown]
  - Blood cholesterol increased [Unknown]
  - Intervertebral disc protrusion [Unknown]
  - Nerve compression [Unknown]
  - Kidney infection [Unknown]
  - Hyperchlorhydria [Unknown]
  - Dyspepsia [Unknown]
  - Chest pain [Unknown]
  - Drug dose omission [Unknown]
  - Intentional product misuse [Unknown]
